FAERS Safety Report 20326032 (Version 1)
Quarter: 2022Q1

REPORT INFORMATION
  Report Type: Report from Study
  Country: CA (occurrence: CA)
  Receive Date: 20220112
  Receipt Date: 20220112
  Transmission Date: 20220423
  Serious: Yes (Hospitalization)
  Sender: FDA-Public Use
  Company Number: CA-ABBVIE-21K-028-4148971-00

PATIENT
  Sex: Male

DRUGS (1)
  1. SKYRIZI [Suspect]
     Active Substance: RISANKIZUMAB-RZAA
     Indication: Psoriasis
     Route: 058
     Dates: start: 20210512

REACTIONS (10)
  - Illness [Unknown]
  - Illness [Recovered/Resolved]
  - Diarrhoea [Unknown]
  - Vomiting [Recovered/Resolved]
  - Abdominal pain lower [Unknown]
  - Weight decreased [Unknown]
  - Fall [Unknown]
  - Hand fracture [Unknown]
  - Contusion [Unknown]
  - Malaise [Unknown]

NARRATIVE: CASE EVENT DATE: 20210101
